FAERS Safety Report 8600342 (Version 2)
Quarter: 2013Q3

REPORT INFORMATION
  Report Type: Spontaneous
  Country: US (occurrence: US)
  Receive Date: 20120606
  Receipt Date: 20130722
  Transmission Date: 20140515
  Serious: Yes (Disabling, Other)
  Sender: FDA-Public Use
  Company Number: US-ASTRAZENECA-2012SE35495

PATIENT
  Age: 42 Year
  Sex: Female

DRUGS (8)
  1. NEXIUM [Suspect]
     Indication: GASTROOESOPHAGEAL REFLUX DISEASE
     Dosage: TWO TIMES A DAY OR ONCE A DAY
     Route: 048
  2. NEXIUM [Suspect]
     Indication: GASTROOESOPHAGEAL REFLUX DISEASE
     Dosage: TWO TIMES A DAY OR ONCE A DAY
     Route: 048
  3. SYNTHROID [Concomitant]
  4. PLAQUENIL [Concomitant]
  5. FOLIC ACID [Concomitant]
  6. VITAMIN D [Concomitant]
  7. DEXILANT [Concomitant]
  8. TIZANDINE [Concomitant]

REACTIONS (10)
  - Myocardial infarction [Unknown]
  - Lower limb fracture [Unknown]
  - Neoplasm malignant [Unknown]
  - Ligament rupture [Unknown]
  - Osteoporosis [Unknown]
  - Carpal tunnel syndrome [Unknown]
  - Lupus enteritis [Unknown]
  - Arthritis [Unknown]
  - Hypothyroidism [Unknown]
  - Depression [Unknown]
